FAERS Safety Report 5993641-1 (Version None)
Quarter: 2008Q4

REPORT INFORMATION
  Report Type: 
  Country: None (occurrence: None)
  Receive Date: 20081212
  Receipt Date: 20081209
  Transmission Date: 20090506
  Serious: Yes (Death, Other)
  Sender: FDA-Public Use
  Company Number: PHBS2008AT06614

PATIENT
  Age: 1 Year
  Sex: Female

DRUGS (1)
  1. IMATINIB MESYLATE [Suspect]
     Indication: GLIOMA
     Dosage: 230 MG/M2/DAY

REACTIONS (4)
  - DRUG TOXICITY [None]
  - HYPERNATRAEMIA [None]
  - OEDEMA PERIPHERAL [None]
  - WEIGHT INCREASED [None]
